FAERS Safety Report 5565819-2 (Version None)
Quarter: 2007Q4

REPORT INFORMATION
  Report Type: 
  Country: None (occurrence: None)
  Receive Date: 20071213
  Receipt Date: 20071129
  Transmission Date: 20080405
  Serious: Yes (Life-Threatening, Hospitalization)
  Sender: FDA-Public Use
  Company Number: 2007000503

PATIENT
  Age: 76 Year
  Sex: Male
  Weight: 75.3 kg

DRUGS (10)
  1. ERLOTINIB (TABLET) [Suspect]
     Indication: NON-SMALL CELL LUNG CANCER
     Dosage: 150 MG (QD), ORAL
     Route: 048
     Dates: start: 20061212, end: 20070208
  2. BEVACIZUMAB (INJECTION FOR INFUSION) [Suspect]
     Indication: NON-SMALL CELL LUNG CANCER
     Dosage: 1290 MG (Q3W), INTRAVENOUS
     Route: 042
     Dates: start: 20061212, end: 20070208
  3. BEVACIZUMAB (INJECTION FOR INFUSION) [Suspect]
  4. BEVACIZUMAB (INJECTION FOR INFUSION) [Suspect]
  5. TOPROL-XL [Concomitant]
  6. LIPITOR [Concomitant]
  7. NIASPAN [Concomitant]
  8. NITROSTAT [Concomitant]
  9. ASPIRIN [Concomitant]
  10. ALLEGRA (FEXOFENADINE HYDROCHLORIDE) [Concomitant]

REACTIONS (1)
  - PULMONARY EMBOLISM [None]
